FAERS Safety Report 6546511-4 (Version None)
Quarter: 2010Q1

REPORT INFORMATION
  Report Type: 
  Country: None (occurrence: None)
  Receive Date: 20100122
  Receipt Date: 20100113
  Transmission Date: 20100710
  Serious: Yes (Hospitalization, Other)
  Sender: FDA-Public Use
  Company Number: US-ASTRAZENECA-2010SE01841

PATIENT
  Age: 1136 Month
  Sex: Female

DRUGS (1)
  1. SEROQUEL [Suspect]
     Indication: DEMENTIA
     Route: 048
     Dates: start: 20020101

REACTIONS (6)
  - FALL [None]
  - GALLBLADDER OPERATION [None]
  - INNER EAR DISORDER [None]
  - PAIN [None]
  - PELVIC FRACTURE [None]
  - VERTIGO [None]
